FAERS Safety Report 17248276 (Version 2)
Quarter: 2020Q1

REPORT INFORMATION
  Report Type: Report from Study
  Country: NO (occurrence: NO)
  Receive Date: 20200108
  Receipt Date: 20200330
  Transmission Date: 20200409
  Serious: Yes (Death)
  Sender: FDA-Public Use
  Company Number: NO-UCBSA-2017014045

PATIENT

DRUGS (1)
  1. LACOSAMIDE. [Suspect]
     Active Substance: LACOSAMIDE
     Indication: EPILEPSY
     Dosage: UNK

REACTIONS (14)
  - Skin reaction [Unknown]
  - Adverse reaction [Unknown]
  - Dizziness [Unknown]
  - Headache [Unknown]
  - Subarachnoid haemorrhage [Fatal]
  - Fatigue [Unknown]
  - Nausea [Unknown]
  - Visual impairment [Unknown]
  - Mental disorder [Unknown]
  - Behaviour disorder [Unknown]
  - Drug ineffective [Unknown]
  - Sedation [Unknown]
  - Gastrointestinal disorder [Unknown]
  - Cognitive disorder [Unknown]
